FAERS Safety Report 13920754 (Version 2)
Quarter: 2022Q1

REPORT INFORMATION
  Report Type: Report from Study
  Country: US (occurrence: US)
  Receive Date: 20170830
  Receipt Date: 20220301
  Transmission Date: 20220423
  Serious: Yes (Other)
  Sender: FDA-Public Use
  Company Number: US-TEVA-794690ISR

PATIENT
  Sex: Female

DRUGS (3)
  1. AUSTEDO [Suspect]
     Active Substance: DEUTETRABENAZINE
     Indication: Huntington^s disease
     Dosage: 6 MILLIGRAM DAILY; INITIAL DOSE, TITRATION
     Route: 048
     Dates: start: 20170708
  2. AUSTEDO [Suspect]
     Active Substance: DEUTETRABENAZINE
     Dosage: 18 MILLIGRAM DAILY; WEEK 3 OF TITRATION AT DOSE OF 9 MG TWICE DAILY
     Route: 065
  3. AUSTEDO [Suspect]
     Active Substance: DEUTETRABENAZINE
     Route: 065

REACTIONS (8)
  - Gait inability [Unknown]
  - Energy increased [Unknown]
  - Restlessness [Unknown]
  - Sedation [Unknown]
  - Somnolence [Unknown]
  - Mental disability [Unknown]
  - Product dose omission issue [Unknown]
  - Physical disability [Unknown]
